FAERS Safety Report 12840111 (Version 1)
Quarter: 2016Q4

REPORT INFORMATION
  Report Type: Report from Study
  Country: PE (occurrence: PE)
  Receive Date: 20161012
  Receipt Date: 20161012
  Transmission Date: 20170207
  Serious: Yes (Other)
  Sender: FDA-Public Use
  Company Number: PE-TEVA-698015ISR

PATIENT
  Age: 45 Year
  Sex: Female

DRUGS (1)
  1. FILARTROS 20 MG TAB [Suspect]
     Active Substance: LEFLUNOMIDE
     Dosage: 20 MILLIGRAM DAILY;
     Route: 048
     Dates: start: 2009

REACTIONS (2)
  - Liver disorder [Not Recovered/Not Resolved]
  - Gallbladder operation [Recovered/Resolved]

NARRATIVE: CASE EVENT DATE: 201608
